FAERS Safety Report 10098039 (Version 1)
Quarter: 2014Q2

REPORT INFORMATION
  Report Type: Spontaneous
  Country: US (occurrence: None)
  Receive Date: 20140421
  Receipt Date: 20140421
  Transmission Date: 20141212
  Serious: Yes (Hospitalization)
  Sender: FDA-Public Use
  Company Number: 2014040031

PATIENT
  Age: 69 Year
  Sex: Female

DRUGS (1)
  1. ASTEPRO [Suspect]
     Dosage: IN
     Dates: start: 201404, end: 201404

REACTIONS (2)
  - Heart rate irregular [None]
  - Heart rate increased [None]
